FAERS Safety Report 18651979 (Version 1)
Quarter: 2020Q4

REPORT INFORMATION
  Report Type: Other
  Country: DE (occurrence: DE)
  Receive Date: 20201223
  Receipt Date: 20201223
  Transmission Date: 20210114
  Serious: Yes (Life-Threatening, Other)
  Sender: FDA-Public Use
  Company Number: DE-ROCHE-2733964

PATIENT
  Age: 58 Year
  Sex: Female

DRUGS (5)
  1. TEMOZOLAMIDE [Suspect]
     Active Substance: TEMOZOLOMIDE
     Dosage: REDUCED
     Route: 048
  2. TEMOZOLAMIDE [Suspect]
     Active Substance: TEMOZOLOMIDE
     Indication: NEUROENDOCRINE TUMOUR
     Route: 048
  3. CAPECITABINE. [Suspect]
     Active Substance: CAPECITABINE
     Indication: NEUROENDOCRINE TUMOUR
     Route: 048
  4. LANREOTIDE [Concomitant]
     Active Substance: LANREOTIDE
  5. CAPECITABINE. [Suspect]
     Active Substance: CAPECITABINE
     Dosage: REDUCED
     Route: 048

REACTIONS (4)
  - Bone marrow failure [Recovered/Resolved]
  - Febrile neutropenia [Recovered/Resolved]
  - Breast necrosis [Recovered/Resolved]
  - Pneumonia fungal [Recovered/Resolved]
